FAERS Safety Report 26066860 (Version 1)
Quarter: 2025Q4

REPORT INFORMATION
  Report Type: Spontaneous
  Country: EU (occurrence: EU)
  Receive Date: 20251119
  Receipt Date: 20251119
  Transmission Date: 20260117
  Serious: Yes (Hospitalization, Other)
  Sender: SANDOZ
  Company Number: EU-ARISTO PHARMA-CLIN202403251

PATIENT
  Age: 62 Year
  Sex: Female

DRUGS (1)
  1. CLINDAMYCIN HYDROCHLORIDE [Suspect]
     Active Substance: CLINDAMYCIN HYDROCHLORIDE
     Indication: Product used for unknown indication
     Dosage: 450 MG
     Route: 065
     Dates: start: 202403

REACTIONS (2)
  - Myocardial infarction [Unknown]
  - Blister [Unknown]

NARRATIVE: CASE EVENT DATE: 20240301
